FAERS Safety Report 9098040 (Version 4)
Quarter: 2013Q3

REPORT INFORMATION
  Report Type: Spontaneous
  Country: US (occurrence: US)
  Receive Date: 20130213
  Receipt Date: 20130930
  Transmission Date: 20140515
  Serious: Yes (Hospitalization, Other)
  Sender: FDA-Public Use
  Company Number: US-009507513-1302USA005147

PATIENT
  Sex: Female

DRUGS (8)
  1. FOSAMAX [Suspect]
     Indication: OSTEOPOROSIS
     Dosage: 10 MG, QD
     Route: 048
     Dates: start: 200106, end: 200110
  2. FOSAMAX [Suspect]
     Dosage: 70 MG, QW
     Route: 048
     Dates: end: 20080119
  3. ALENDRONATE SODIUM [Suspect]
     Indication: OSTEOPOROSIS
     Dosage: 70 MG, QW
     Route: 048
     Dates: start: 20080211, end: 201009
  4. ASCORBIC ACID [Concomitant]
     Dosage: UNK
  5. VITAMIN E [Concomitant]
     Dosage: UNK
     Dates: start: 2000, end: 201006
  6. PREMARIN [Concomitant]
     Dosage: .625 MG, UNK
     Route: 067
     Dates: start: 200102
  7. PRAVACHOL [Concomitant]
  8. RANITIDINE [Concomitant]

REACTIONS (33)
  - Femur fracture [Unknown]
  - Open reduction of fracture [Unknown]
  - Hypoacusis [Unknown]
  - Pulmonary embolism [Unknown]
  - Ventricular extrasystoles [Unknown]
  - Thrombocytopenia [Recovered/Resolved]
  - Vertigo [Recovered/Resolved]
  - Macular degeneration [Unknown]
  - Osteopenia [Unknown]
  - Hepatic cyst [Unknown]
  - Haemoglobin decreased [Recovered/Resolved]
  - Hysterectomy [Unknown]
  - Inguinal hernia repair [Unknown]
  - Tonsillectomy [Unknown]
  - Anaemia [Unknown]
  - Hiatus hernia [Unknown]
  - Urinary incontinence [Unknown]
  - Atrophy [Unknown]
  - Femoral hernia [Unknown]
  - Appendicectomy [Unknown]
  - Ventricular tachycardia [Unknown]
  - Spinal compression fracture [Unknown]
  - Rales [Unknown]
  - Kyphosis [Unknown]
  - Drug intolerance [Unknown]
  - Transient ischaemic attack [Recovered/Resolved]
  - Carotid arteriosclerosis [Unknown]
  - Renal cyst [Unknown]
  - Vertebroplasty [Unknown]
  - Diverticulum [Unknown]
  - Oedema peripheral [Unknown]
  - Constipation [Not Recovered/Not Resolved]
  - Nausea [Unknown]
